FAERS Safety Report 19181136 (Version 1)
Quarter: 2021Q2

REPORT INFORMATION
  Report Type: Spontaneous
  Country: CA (occurrence: CA)
  Receive Date: 20210426
  Receipt Date: 20210426
  Transmission Date: 20210717
  Serious: Yes (Disabling, Other)
  Sender: FDA-Public Use
  Company Number: NVSC2021CA090145

PATIENT
  Sex: Female

DRUGS (2)
  1. LAXATIVE [Concomitant]
     Active Substance: UNSPECIFIED INGREDIENT
     Indication: PRODUCT USED FOR UNKNOWN INDICATION
     Dosage: UNK
     Route: 065
  2. CIPROFLOXACIN SANDOZ [Suspect]
     Active Substance: CIPROFLOXACIN
     Indication: CYSTITIS
     Dosage: 500 MG
     Route: 048

REACTIONS (15)
  - Intestinal obstruction [Unknown]
  - Stomatitis [Unknown]
  - Hyperhidrosis [Unknown]
  - Pain in extremity [Unknown]
  - Dysgeusia [Unknown]
  - Arthritis [Unknown]
  - Pain [Unknown]
  - Asthenia [Unknown]
  - Fatigue [Unknown]
  - Eating disorder [Unknown]
  - Arthralgia [Unknown]
  - Sleep disorder [Unknown]
  - Chest discomfort [Unknown]
  - Neurogenic bowel [Unknown]
  - Constipation [Unknown]
